FAERS Safety Report 9023804 (Version 1)
Quarter: 2013Q1

REPORT INFORMATION
  Report Type: Spontaneous
  Country: FI (occurrence: FI)
  Receive Date: 20130121
  Receipt Date: 20130121
  Transmission Date: 20140127
  Serious: Yes (Hospitalization)
  Sender: FDA-Public Use
  Company Number: FI-ELI_LILLY_AND_COMPANY-FI201301002910

PATIENT
  Sex: Female

DRUGS (9)
  1. FORSTEO [Suspect]
     Indication: OSTEOPOROSIS
     Dosage: 20 UG, QD
     Route: 058
     Dates: start: 20110607
  2. CALCIUM D [Concomitant]
     Indication: MEDICAL DIET
  3. PARACETAMOL [Concomitant]
     Indication: PAIN
  4. PANACOD [Concomitant]
     Indication: PAIN
  5. OXITAN [Concomitant]
     Indication: LYMPHOCYTIC LEUKAEMIA
  6. FISH OIL [Concomitant]
     Indication: MEDICAL DIET
  7. LINATIL [Concomitant]
     Indication: BLOOD PRESSURE
  8. VITAMIN D [Concomitant]
     Indication: MEDICAL DIET
  9. NORSPAN [Concomitant]
     Indication: PAIN

REACTIONS (2)
  - General physical health deterioration [Not Recovered/Not Resolved]
  - Dizziness [Not Recovered/Not Resolved]
